FAERS Safety Report 7582341-2 (Version None)
Quarter: 2011Q2

REPORT INFORMATION
  Report Type: 
  Country: None (occurrence: None)
  Receive Date: 20110630
  Receipt Date: 20110623
  Transmission Date: 20111010
  Serious: Yes (Other)
  Sender: FDA-Public Use
  Company Number: US-JNJFOC-20100900074

PATIENT
  Sex: Female

DRUGS (3)
  1. LEVAQUIN [Suspect]
     Indication: SINUSITIS
     Route: 048
     Dates: start: 20080725, end: 20080729
  2. PREDNISONE [Suspect]
     Indication: ASTHMA
     Route: 065
     Dates: start: 20070101
  3. METHYLPREDNISOLONE [Suspect]
     Indication: STEROID THERAPY
     Route: 065
     Dates: start: 20050101

REACTIONS (7)
  - TENDON PAIN [None]
  - MENISCUS LESION [None]
  - ARTHRALGIA [None]
  - VOMITING [None]
  - TENDON DISORDER [None]
  - BURSITIS [None]
  - JOINT EFFUSION [None]
